FAERS Safety Report 4415981-X (Version None)
Quarter: 2004Q3

REPORT INFORMATION
  Report Type: 
  Country: None (occurrence: None)
  Receive Date: 20040802
  Receipt Date: 20040719
  Transmission Date: 20050211
  Serious: Yes (Hospitalization)
  Sender: FDA-Public Use
  Company Number: 2004224591FR

PATIENT
  Age: 45 Year
  Sex: Male

DRUGS (13)
  1. SOLU-MEDROL [Suspect]
     Dosage: 40 MG, QID, IV
     Route: 042
     Dates: start: 20040504, end: 20040518
  2. CYAMEMAZINE(CYAMEMAZINE) [Suspect]
     Dosage: ORAL
     Route: 048
     Dates: start: 20040511, end: 20040524
  3. ROCEPHIN [Suspect]
     Dosage: 2 G, QD, IV
     Route: 042
     Dates: start: 20040504, end: 20040520
  4. MIANSERIN NM (MIANSERIN HYDROCHLORIDE, MIANSERIN HYDROCHLORIDE) TABLET [Suspect]
     Dosage: 10 MG, QD, ORAL
     Route: 048
     Dates: start: 20040518, end: 20040526
  5. DELTASONE [Suspect]
     Dosage: 20 MG, TID, ORAL
     Route: 048
     Dates: start: 20040517, end: 20040526
  6. MIDAZOLAM [Concomitant]
  7. FENTANYL CITRATE [Concomitant]
  8. DROTRECOGINE ALFA [Concomitant]
  9. INSULIN [Concomitant]
  10. FOLIC ACID [Concomitant]
  11. SODIUM BICARBONATE, MACROGOL 33 [Concomitant]
  12. DIOSMECTITE [Concomitant]
  13. OFLOXACIN [Concomitant]

REACTIONS (9)
  - ANAEMIA [None]
  - BONE MARROW DEPRESSION [None]
  - COLITIS [None]
  - DISEASE PROGRESSION [None]
  - LUNG DISORDER [None]
  - NEUTROPENIA [None]
  - PLATELET COUNT DECREASED [None]
  - SEPSIS [None]
  - SUPERINFECTION LUNG [None]
